FAERS Safety Report 4493939-2 (Version None)
Quarter: 2004Q4

REPORT INFORMATION
  Report Type: 
  Country: None (occurrence: None)
  Receive Date: 20041102
  Receipt Date: 20041102
  Transmission Date: 20050328
  Serious: Yes (Hospitalization)
  Sender: FDA-Public Use
  Company Number: None

PATIENT
  Age: 53 Year
  Sex: Female
  Weight: 68 kg

DRUGS (2)
  1. PIOGLITAZONE 15 MG TAKEDA PHARMACEUTICALS [Suspect]
     Indication: DIABETES MELLITUS
     Dosage: 15 MG DAILY ORAL
     Route: 048
     Dates: start: 20040810, end: 20040823
  2. NOVOLIN 70/30 [Concomitant]

REACTIONS (5)
  - DYSPNOEA [None]
  - EYE SWELLING [None]
  - GASTRIC DISORDER [None]
  - OEDEMA PERIPHERAL [None]
  - SWELLING [None]
